FAERS Safety Report 8465421-9 (Version None)
Quarter: 2012Q2

REPORT INFORMATION
  Report Type: 
  Country: None (occurrence: None)
  Receive Date: 20120626
  Receipt Date: 20120614
  Transmission Date: 20120825
  Serious: Yes (Other)
  Sender: FDA-Public Use
  Company Number: PHEH2012US008600

PATIENT
  Sex: Male
  Weight: 117.46 kg

DRUGS (5)
  1. DIOVAN HCT [Suspect]
     Dosage: UNK UKN, UNK
  2. TOPROL-XL [Concomitant]
     Indication: HYPERTENSION
     Dosage: UNK UKN, QD
     Route: 048
  3. OMEPRAZOLE [Concomitant]
     Indication: GASTROOESOPHAGEAL REFLUX DISEASE
     Dosage: UNK UKN, QD
  4. BYSTOLIC [Concomitant]
     Indication: HYPERTENSION
     Dosage: UNK UKN, QD
     Route: 048
     Dates: end: 20120503
  5. TRIGLIDE [Concomitant]
     Indication: HYPERLIPIDAEMIA
     Dosage: UNK UKN, QD
     Route: 048

REACTIONS (1)
  - COELIAC DISEASE [None]
